FAERS Safety Report 8579929-9 (Version None)
Quarter: 2012Q3

REPORT INFORMATION
  Report Type: 
  Country: None (occurrence: None)
  Receive Date: 20120808
  Receipt Date: 20120726
  Transmission Date: 20120928
  Serious: Yes (Hospitalization, Other)
  Sender: FDA-Public Use
  Company Number: DE-ELI_LILLY_AND_COMPANY-DE201207000067

PATIENT
  Age: 69 Year
  Sex: Female

DRUGS (4)
  1. CARBAMAZEPINE [Concomitant]
     Dosage: 150 MG, EACH EVENING
  2. METOPROLOL SUCCINATE [Concomitant]
  3. ASPIRIN [Concomitant]
  4. ZYPREXA [Suspect]
     Indication: DELUSIONAL DISORDER, UNSPECIFIED TYPE
     Dosage: 20 MG, UNK
     Route: 048
     Dates: start: 20100101, end: 20120612

REACTIONS (6)
  - PNEUMONIA ASPIRATION [None]
  - DYSPHAGIA [None]
  - APHAGIA [None]
  - PARKINSONISM [None]
  - DYSKINESIA [None]
  - CHILLS [None]
